FAERS Safety Report 22160152 (Version 1)
Quarter: 2023Q1

REPORT INFORMATION
  Report Type: Spontaneous
  Country: US (occurrence: US)
  Receive Date: 20230331
  Receipt Date: 20230331
  Transmission Date: 20230418
  Serious: Yes (Other)
  Sender: FDA-Public Use
  Company Number: US-BAYER-2023A038549

PATIENT

DRUGS (1)
  1. ASPIRIN [Suspect]
     Active Substance: ASPIRIN
     Indication: Factor V deficiency
     Dosage: TABLET/CAPLET/GELCAP

REACTIONS (4)
  - Aneurysm [Unknown]
  - Vascular graft [Unknown]
  - Staphylococcal infection [Unknown]
  - Product use in unapproved indication [Unknown]
